FAERS Safety Report 10905222 (Version 1)
Quarter: 2015Q1

REPORT INFORMATION
  Report Type: Spontaneous
  Country: US (occurrence: None)
  Receive Date: 20150309
  Receipt Date: 20150309
  Transmission Date: 20150721
  Serious: Yes (Other)
  Sender: FDA-Public Use
  Company Number: None

PATIENT
  Age: 43 Year
  Sex: Female
  Weight: 77.11 kg

DRUGS (1)
  1. CIPROFLOXIN [Suspect]
     Active Substance: CIPROFLOXACIN
     Indication: ANIMAL BITE
     Dosage: 1 TABLET
     Route: 048
     Dates: start: 20150220, end: 20150225

REACTIONS (6)
  - Psychotic disorder [None]
  - Violence-related symptom [None]
  - Anxiety [None]
  - Tendonitis [None]
  - Myalgia [None]
  - Abnormal behaviour [None]

NARRATIVE: CASE EVENT DATE: 20150225
